FAERS Safety Report 5033271-1 (Version None)
Quarter: 2006Q2

REPORT INFORMATION
  Report Type: 
  Country: None (occurrence: None)
  Receive Date: 20060623
  Receipt Date: 20060619
  Transmission Date: 20061013
  Serious: Yes (Death)
  Sender: FDA-Public Use
  Company Number: CH-BRISTOL-MYERS SQUIBB COMPANY-13420070

PATIENT
  Age: 58 Year
  Sex: Female

DRUGS (7)
  1. TAMOXIFEN CITRATE [Suspect]
     Indication: BREAST CANCER
     Route: 048
     Dates: start: 19950328, end: 19980908
  2. CYCLOPHOSPHAMIDE [Suspect]
     Indication: BREAST CANCER
     Route: 042
     Dates: start: 19941020, end: 19941221
  3. CYCLOPHOSPHAMIDE [Suspect]
     Route: 048
     Dates: start: 19950111, end: 19950321
  4. METHOTREXATE [Suspect]
     Indication: BREAST CANCER
     Route: 048
     Dates: start: 19950111, end: 19950321
  5. METHOTREXATE [Suspect]
     Route: 042
     Dates: start: 19950111, end: 19950321
  6. DOXORUBICIN HCL [Suspect]
     Indication: BREAST CANCER
     Route: 042
     Dates: start: 19941020, end: 19941221
  7. FLUOROURACIL [Suspect]
     Indication: BREAST CANCER
     Route: 048
     Dates: start: 19950111, end: 19950321

REACTIONS (2)
  - ACUTE MYELOID LEUKAEMIA [None]
  - TREATMENT RELATED SECONDARY MALIGNANCY [None]
